FAERS Safety Report 21588678 (Version 1)
Quarter: 2022Q4

REPORT INFORMATION
  Report Type: Spontaneous
  Country: CA (occurrence: CA)
  Receive Date: 20221114
  Receipt Date: 20221114
  Transmission Date: 20230112
  Serious: Yes (Death)
  Sender: FDA-Public Use
  Company Number: CA-STRIDES ARCOLAB LIMITED-2022SP015183

PATIENT
  Age: 20 Year
  Sex: Male

DRUGS (6)
  1. VALGANCICLOVIR HYDROCHLORIDE [Suspect]
     Active Substance: VALGANCICLOVIR HYDROCHLORIDE
     Indication: Cytomegalovirus chorioretinitis
     Dosage: UNK
     Route: 065
  2. NELARABINE [Concomitant]
     Active Substance: NELARABINE
     Indication: Acute lymphocytic leukaemia recurrent
     Dosage: UNK (INITIAL CHEMOTHERAPY REGIMEN )
     Route: 065
  3. DARATUMUMAB [Concomitant]
     Active Substance: DARATUMUMAB
     Indication: Acute lymphocytic leukaemia recurrent
     Dosage: UNK (HYPER-CVAD CHEMOTHERAPY)
     Route: 065
  4. VENETOCLAX [Concomitant]
     Active Substance: VENETOCLAX
     Indication: Acute lymphocytic leukaemia recurrent
     Dosage: UNK (HYPER-CVAD CHEMOTHERAPY )
     Route: 065
  5. FOSCARNET [Concomitant]
     Active Substance: FOSCARNET
     Indication: Cytomegalovirus chorioretinitis
     Dosage: UNK
  6. GANCICLOVIR [Concomitant]
     Active Substance: GANCICLOVIR
     Indication: Cytomegalovirus chorioretinitis
     Dosage: UNK
     Route: 042

REACTIONS (1)
  - Drug ineffective [Fatal]
